FAERS Safety Report 15386080 (Version 3)
Quarter: 2019Q2

REPORT INFORMATION
  Report Type: Spontaneous
  Country: TW (occurrence: TW)
  Receive Date: 20180914
  Receipt Date: 20190502
  Transmission Date: 20190711
  Serious: Yes (Hospitalization)
  Sender: FDA-Public Use
  Company Number: TW-ACTELION-A-CH2018-178627

PATIENT
  Age: 48 Year
  Sex: Male
  Weight: 81 kg

DRUGS (8)
  1. TRACLEER [Suspect]
     Active Substance: BOSENTAN
     Indication: PULMONARY ARTERIAL HYPERTENSION
     Dosage: UNK
     Route: 048
     Dates: start: 201006
  2. UPTRAVI [Concomitant]
     Active Substance: SELEXIPAG
     Dosage: 200 MCG, TID
     Route: 048
     Dates: start: 20180512
  3. REVATIO [Suspect]
     Active Substance: SILDENAFIL CITRATE
     Indication: PULMONARY ARTERIAL HYPERTENSION
     Dosage: UNK
     Route: 048
     Dates: start: 201005, end: 2013
  4. ILOPROST. [Suspect]
     Active Substance: ILOPROST
     Indication: PULMONARY ARTERIAL HYPERTENSION
     Dosage: UNK
     Route: 065
     Dates: start: 201309
  5. UPTRAVI [Concomitant]
     Active Substance: SELEXIPAG
     Indication: PULMONARY ARTERIAL HYPERTENSION
     Dosage: 200 MCG, BID
     Route: 048
     Dates: start: 20180509
  6. UPTRAVI [Concomitant]
     Active Substance: SELEXIPAG
     Dosage: 400 MCG, BID
     Route: 048
     Dates: start: 20180513
  7. UPTRAVI [Concomitant]
     Active Substance: SELEXIPAG
     Dosage: 600 MCG, BID
     Route: 048
     Dates: start: 20180515
  8. ADEMPAS [Concomitant]
     Active Substance: RIOCIGUAT
     Indication: PULMONARY ARTERIAL HYPERTENSION
     Dosage: UNK
     Dates: start: 2013

REACTIONS (21)
  - Dyspnoea [Unknown]
  - Pulmonary arterial hypertension [Recovering/Resolving]
  - Condition aggravated [Recovering/Resolving]
  - PO2 decreased [Unknown]
  - Dyspnoea exertional [Unknown]
  - Wheezing [Unknown]
  - Right ventricular failure [Unknown]
  - Treatment noncompliance [Unknown]
  - Right ventricular dilatation [Unknown]
  - Oedema peripheral [Unknown]
  - Right atrial dilatation [Unknown]
  - Heart sounds abnormal [Unknown]
  - Abdominal distension [Unknown]
  - Weight increased [Unknown]
  - White blood cell count increased [Unknown]
  - Cough [Unknown]
  - Asthma [Unknown]
  - Erection increased [Unknown]
  - Organising pneumonia [Unknown]
  - Haemoptysis [Unknown]
  - Lung infection [Unknown]

NARRATIVE: CASE EVENT DATE: 2013
